FAERS Safety Report 5528740-1 (Version None)
Quarter: 2007Q4

REPORT INFORMATION
  Report Type: 
  Country: None (occurrence: None)
  Receive Date: 20071129
  Receipt Date: 20071121
  Transmission Date: 20080405
  Serious: Yes (Hospitalization)
  Sender: FDA-Public Use
  Company Number: US-ASTRAZENECA-2007UW26843

PATIENT
  Age: 83 Year
  Sex: Female
  Weight: 48.1 kg

DRUGS (5)
  1. ATACAND [Suspect]
     Indication: HYPERTENSION
     Route: 048
     Dates: start: 20071120, end: 20071120
  2. CLONIDINE [Concomitant]
  3. DIOVAN [Concomitant]
  4. METOPROLOL TARTRATE [Concomitant]
  5. FLUOXETINE [Concomitant]

REACTIONS (3)
  - CEREBRAL THROMBOSIS [None]
  - MALAISE [None]
  - SOMNOLENCE [None]
